FAERS Safety Report 9207800 (Version 14)
Quarter: 2015Q2

REPORT INFORMATION
  Report Type: Spontaneous
  Country: US (occurrence: US)
  Receive Date: 20130403
  Receipt Date: 20150619
  Transmission Date: 20150821
  Serious: Yes (Hospitalization, Other)
  Sender: FDA-Public Use
  Company Number: US-GLAXOSMITHKLINE-A1018427A

PATIENT
  Age: 50 Year
  Sex: Female

DRUGS (15)
  1. LAMOTRIGINE. [Suspect]
     Active Substance: LAMOTRIGINE
     Indication: CONVULSION PROPHYLAXIS
     Route: 048
  2. LUMIGAN [Concomitant]
     Active Substance: BIMATOPROST
  3. LAMICTAL XR [Suspect]
     Active Substance: LAMOTRIGINE
     Dosage: 200 MG, QD
  4. LAMICTAL XR [Suspect]
     Active Substance: LAMOTRIGINE
     Dosage: 100 MG, QD
  5. LAMICTAL XR [Suspect]
     Active Substance: LAMOTRIGINE
     Dosage: 300 MG, QD
     Route: 048
     Dates: start: 2007, end: 201209
  6. LAMICTAL [Suspect]
     Active Substance: LAMOTRIGINE
     Indication: SEIZURE
     Dosage: 400 MG, QD
  7. RESTASIS [Concomitant]
     Active Substance: CYCLOSPORINE
  8. LAMICTAL XR [Suspect]
     Active Substance: LAMOTRIGINE
     Indication: CONVULSION PROPHYLAXIS
     Dosage: 200 MG, U
     Route: 048
     Dates: start: 2005
  9. LAMICTAL XR [Suspect]
     Active Substance: LAMOTRIGINE
     Indication: SEIZURE
     Dosage: 400 MG, U
     Dates: start: 20070101
  10. LAMICTAL XR [Suspect]
     Active Substance: LAMOTRIGINE
     Dosage: 100 MG, U
     Dates: start: 20130429
  11. CLONAZEPAM. [Concomitant]
     Active Substance: CLONAZEPAM
  12. LAMICTAL XR [Suspect]
     Active Substance: LAMOTRIGINE
     Dosage: 400 MG, QD
     Route: 048
     Dates: start: 201209
  13. LAMICTAL XR [Suspect]
     Active Substance: LAMOTRIGINE
     Dosage: 400 MG, QD
  14. DILANTIN [Concomitant]
     Active Substance: PHENYTOIN
  15. LASIX [Concomitant]
     Active Substance: FUROSEMIDE

REACTIONS (15)
  - Loss of consciousness [Not Recovered/Not Resolved]
  - Brain injury [Unknown]
  - Amnesia [Unknown]
  - Vagal nerve stimulator implantation [Unknown]
  - Seizure [Not Recovered/Not Resolved]
  - Intentional product use issue [Unknown]
  - Vision blurred [Not Recovered/Not Resolved]
  - Feeling abnormal [Unknown]
  - Memory impairment [Unknown]
  - Visual impairment [Unknown]
  - Drug ineffective [Unknown]
  - Craniotomy [Unknown]
  - Brain operation [Unknown]
  - Brain lobectomy [Recovered/Resolved]
  - Malaise [Unknown]

NARRATIVE: CASE EVENT DATE: 200607
